FAERS Safety Report 5384730-3 (Version None)
Quarter: 2007Q3

REPORT INFORMATION
  Report Type: 
  Country: None (occurrence: None)
  Receive Date: 20070711
  Receipt Date: 20070629
  Transmission Date: 20080115
  Serious: Yes (Hospitalization)
  Sender: FDA-Public Use
  Company Number: SG-PFIZER INC-2007053909

PATIENT
  Age: 73 Year
  Sex: Female

DRUGS (2)
  1. SULFASALAZINE [Suspect]
     Route: 048
     Dates: start: 20070227, end: 20070329
  2. CALCITONIN-SALMON [Suspect]
     Dates: start: 20070320, end: 20070329

REACTIONS (3)
  - MUCOSAL ULCERATION [None]
  - RASH ERYTHEMATOUS [None]
  - RASH MACULO-PAPULAR [None]
